FAERS Safety Report 12966296 (Version 3)
Quarter: 2016Q4

REPORT INFORMATION
  Report Type: Report from Study
  Country: None (occurrence: AT)
  Receive Date: 20161122
  Receipt Date: 20161229
  Transmission Date: 20170207
  Serious: Yes (Hospitalization)
  Sender: FDA-Public Use
  Company Number: AT-ABBVIE-16P-009-1751891-00

PATIENT
  Age: 71 Year
  Sex: Female
  Weight: 61.7 kg

DRUGS (13)
  1. DOXORUBICIN [Suspect]
     Active Substance: DOXORUBICIN
     Indication: B-CELL LYMPHOMA
     Dosage: MOST RECENT DOSES (85 MG) PRIOR TO AE ONSETS WERE ON 03/OCT/2016 AND 24/OCT/16.
     Route: 042
     Dates: start: 20160819
  2. DIAMICRON [Concomitant]
     Active Substance: GLICLAZIDE
     Indication: TYPE 2 DIABETES MELLITUS
  3. RED BLOOD CELL CONCENTRATE [Concomitant]
     Active Substance: HUMAN RED BLOOD CELL
     Indication: ANAEMIA
     Dates: start: 20160923, end: 20160923
  4. VENETOCLAX [Suspect]
     Active Substance: VENETOCLAX
     Indication: B-CELL LYMPHOMA
     Dosage: MOST RECENT DOSE (800 MG) PRIOR TO THE EVENT ONSET WAS ON 12/OCT/2016
     Route: 048
     Dates: start: 20160822
  5. VINCRISTINE [Suspect]
     Active Substance: VINCRISTINE
     Indication: B-CELL LYMPHOMA
     Dosage: MOST RECENT DOSES (1 MG) PRIOR TO AE ONSETS WERE ON 03/OCT/2016 AND 24/OCT/2016
     Route: 042
     Dates: start: 20160819
  6. PREDNISONE. [Suspect]
     Active Substance: PREDNISONE
     Indication: B-CELL LYMPHOMA
     Dosage: THE MOST RECENT DOSES(100 MG) PRIOR TO AE ONSETS WERE ON 03/OCT/2016 AND 07/OCT/2016
     Route: 048
     Dates: start: 20160818
  7. SYNJARDY [Concomitant]
     Active Substance: EMPAGLIFLOZIN\METFORMIN HYDROCHLORIDE
     Indication: TYPE 2 DIABETES MELLITUS
  8. RITUXIMAB [Suspect]
     Active Substance: RITUXIMAB
     Indication: B-CELL LYMPHOMA
     Dosage: MOST RECENT DOSE(630 MG) PRIOR TO AE ONSET WAS 03/OCT/16 + 375MG/M2 ON 24/OCT/2016
     Route: 042
     Dates: start: 20160818
  9. CYCLOPHOSPHAMIDE. [Suspect]
     Active Substance: CYCLOPHOSPHAMIDE
     Indication: B-CELL LYMPHOMA
     Dosage: MOST RECENT DOSE (1250 MG) PRIOR TO EVENT ONSET WAS 03/OCT/16 + (1200MG) ON 24/OCT/16
     Route: 042
     Dates: start: 20160819
  10. EUTHYROX [Concomitant]
     Active Substance: LEVOTHYROXINE SODIUM
     Indication: HYPOTHYROIDISM
  11. AMELIOR PLUS HCT [Concomitant]
     Indication: HYPERTENSION
  12. NOMEXOR [Concomitant]
     Active Substance: NEBIVOLOL HYDROCHLORIDE
     Indication: HYPERTENSION
  13. PRAXITEN [Concomitant]
     Active Substance: OXAZEPAM
     Indication: NERVOUSNESS

REACTIONS (2)
  - Neutropenia [Recovered/Resolved]
  - Enterocolitis [Recovered/Resolved]

NARRATIVE: CASE EVENT DATE: 20161012
